FAERS Safety Report 20344686 (Version 1)
Quarter: 2022Q1

REPORT INFORMATION
  Report Type: Report from Study
  Country: PK (occurrence: PK)
  Receive Date: 20220118
  Receipt Date: 20220118
  Transmission Date: 20220424
  Serious: Yes (Other)
  Sender: FDA-Public Use
  Company Number: PK-NOVARTISPH-NVSC2022PK009248

PATIENT
  Age: 35 Year
  Sex: Male
  Weight: 57 kg

DRUGS (2)
  1. GLIVEC [Suspect]
     Active Substance: IMATINIB MESYLATE
     Indication: Lung adenocarcinoma
     Dosage: 100 MG (4 OD)
     Route: 048
     Dates: start: 20210811, end: 20220112
  2. GLIVEC [Suspect]
     Active Substance: IMATINIB MESYLATE
     Dosage: 100 MG (6 OD)
     Route: 048
     Dates: start: 20220113

REACTIONS (3)
  - Lung adenocarcinoma [Not Recovered/Not Resolved]
  - Malignant neoplasm progression [Not Recovered/Not Resolved]
  - Product use in unapproved indication [Unknown]

NARRATIVE: CASE EVENT DATE: 20220112
